FAERS Safety Report 13303167 (Version 3)
Quarter: 2018Q1

REPORT INFORMATION
  Report Type: Report from Study
  Country: JP (occurrence: JP)
  Receive Date: 20170307
  Receipt Date: 20180214
  Transmission Date: 20180508
  Serious: Yes (Death, Hospitalization, Other)
  Sender: FDA-Public Use
  Company Number: PHJP2017JP007759

PATIENT
  Age: 84 Year
  Sex: Male

DRUGS (2)
  1. ZYKADIA [Suspect]
     Active Substance: CERITINIB
     Dosage: 450 MG, QD
     Route: 048
     Dates: start: 20161116
  2. ZYKADIA [Suspect]
     Active Substance: CERITINIB
     Indication: NON-SMALL CELL LUNG CANCER STAGE IV
     Dosage: 600 MG, QD
     Route: 048
     Dates: start: 20161108, end: 20161112

REACTIONS (7)
  - Peritonitis [Fatal]
  - Adrenocortical insufficiency acute [Recovering/Resolving]
  - Intestinal perforation [Unknown]
  - Pancytopenia [Unknown]
  - Non-small cell lung cancer stage IV [Unknown]
  - Metastases to adrenals [Unknown]
  - Malignant neoplasm progression [Unknown]

NARRATIVE: CASE EVENT DATE: 201611
